FAERS Safety Report 15803183 (Version 1)
Quarter: 2019Q1

REPORT INFORMATION
  Report Type: Spontaneous
  Country: FR (occurrence: FR)
  Receive Date: 20190109
  Receipt Date: 20190109
  Transmission Date: 20190417
  Serious: Yes (Hospitalization)
  Sender: FDA-Public Use
  Company Number: FR-PFIZER INC-2019009246

PATIENT
  Age: 72 Year
  Sex: Male
  Weight: 90 kg

DRUGS (10)
  1. DOLIPRANE [Concomitant]
     Active Substance: ACETAMINOPHEN
     Indication: PAIN
     Dosage: 1 DF, 3X/DAY
     Route: 048
  2. STAGID [Concomitant]
     Active Substance: METFORMIN PAMOATE
     Indication: TYPE 2 DIABETES MELLITUS
     Dosage: 3 DF, 1X/DAY
     Route: 048
  3. LYRICA [Concomitant]
     Active Substance: PREGABALIN
     Indication: PAIN
     Dosage: 1 DF, 3X/DAY
     Route: 048
  4. ENOXAPARIN SODIUM. [Concomitant]
     Active Substance: ENOXAPARIN SODIUM
     Dosage: 4000 IU, 1X/DAY
  5. ALDACTONE [Suspect]
     Active Substance: SPIRONOLACTONE
     Indication: HYPERTENSION
     Dosage: 1 DF, 1X/DAY
     Route: 048
     Dates: start: 20181101, end: 20181113
  6. SITAGLIPTINE [Concomitant]
     Active Substance: SITAGLIPTIN
     Indication: TYPE 2 DIABETES MELLITUS
     Dosage: 100 MG, 1X/DAY
     Route: 048
  7. ISOPTINE [Concomitant]
     Active Substance: VERAPAMIL HYDROCHLORIDE
     Indication: HYPERTENSION
     Dosage: 1 DF, 1X/DAY
     Route: 048
     Dates: start: 20181031
  8. EUPRESSYL [URAPIDIL] [Concomitant]
     Active Substance: URAPIDIL
     Indication: HYPERTENSION
     Dosage: 2 DF, 1X/DAY
     Route: 048
     Dates: start: 2018
  9. MOVICOL [Concomitant]
     Active Substance: POLYETHYLENE GLYCOL 3350\POTASSIUM CHLORIDE\SODIUM BICARBONATE\SODIUM CHLORIDE
     Dosage: 2 DF, 1X/DAY
     Route: 048
  10. BIPRETERAX [INDAPAMIDE;PERINDOPRIL ARGININE] [Suspect]
     Active Substance: INDAPAMIDE\PERINDOPRIL ARGININE
     Indication: HYPERTENSION
     Dosage: 1 DF, 1X/DAY
     Route: 048
     Dates: start: 20181101, end: 20181113

REACTIONS (7)
  - Action tremor [Recovered/Resolved]
  - Ataxia [Recovered/Resolved]
  - Dysaesthesia [Recovered/Resolved]
  - Resting tremor [Recovered/Resolved]
  - Hyponatraemia [Recovered/Resolved]
  - Vomiting [Recovered/Resolved]
  - Gait disturbance [Recovered/Resolved]

NARRATIVE: CASE EVENT DATE: 20181110
